FAERS Safety Report 5833112-6 (Version None)
Quarter: 2008Q3

REPORT INFORMATION
  Report Type: 
  Country: None (occurrence: None)
  Receive Date: 20080805
  Receipt Date: 20080728
  Transmission Date: 20090109
  Serious: Yes (Other)
  Sender: FDA-Public Use
  Company Number: DE-ASTRAZENECA-2007AP02472

PATIENT
  Age: 22880 Day
  Sex: Female

DRUGS (2)
  1. TAMOXIFEN CITRATE [Suspect]
     Indication: BREAST CANCER
     Route: 048
     Dates: start: 20060214
  2. ESTRIOL-OVULUM VAGINAL [Concomitant]
     Indication: VULVOVAGINAL DRYNESS
     Dates: start: 20060801, end: 20060801

REACTIONS (2)
  - CERVICAL POLYP [None]
  - ENDOMETRIAL HYPERPLASIA [None]
